FAERS Safety Report 13063201 (Version 1)
Quarter: 2016Q4

REPORT INFORMATION
  Report Type: Spontaneous
  Country: FR (occurrence: FR)
  Receive Date: 20161227
  Receipt Date: 20161227
  Transmission Date: 20170207
  Serious: Yes (Life-Threatening, Hospitalization)
  Sender: FDA-Public Use
  Company Number: FR-ASTRAZENECA-2016SF35957

PATIENT
  Age: 20943 Day
  Sex: Female

DRUGS (4)
  1. NOCTAMIDE [Suspect]
     Active Substance: LORMETAZEPAM
     Route: 048
  2. XEROQUEL [Suspect]
     Active Substance: QUETIAPINE FUMARATE
     Route: 048
  3. LYSANXIA [Suspect]
     Active Substance: PRAZEPAM
     Route: 065
  4. IXEL [Suspect]
     Active Substance: MILNACIPRAN HYDROCHLORIDE
     Route: 048

REACTIONS (3)
  - Suicide attempt [Recovered/Resolved]
  - Coma scale abnormal [Recovered/Resolved]
  - Toxicity to various agents [Recovered/Resolved]

NARRATIVE: CASE EVENT DATE: 20160624
